FAERS Safety Report 18356432 (Version 1)
Quarter: 2020Q4

REPORT INFORMATION
  Report Type: Spontaneous
  Country: DE (occurrence: DE)
  Receive Date: 20201007
  Receipt Date: 20201007
  Transmission Date: 20210114
  Serious: Yes (Hospitalization)
  Sender: FDA-Public Use
  Company Number: DE-BAUSCH-BL-2020-028089

PATIENT
  Age: 52 Year
  Sex: Female

DRUGS (4)
  1. OLANZAPIN [Suspect]
     Active Substance: OLANZAPINE
     Indication: PRODUCT USED FOR UNKNOWN INDICATION
     Route: 065
     Dates: start: 20200730, end: 20200803
  2. OLANZAPIN [Suspect]
     Active Substance: OLANZAPINE
     Route: 065
     Dates: start: 20200804, end: 20200816
  3. DIAZEPAM. [Suspect]
     Active Substance: DIAZEPAM
     Indication: PRODUCT USED FOR UNKNOWN INDICATION
     Route: 065
     Dates: start: 20200727
  4. OLANZAPIN [Suspect]
     Active Substance: OLANZAPINE
     Route: 065
     Dates: start: 20200817, end: 20200820

REACTIONS (6)
  - Abdominal distension [Recovered/Resolved]
  - Constipation [Recovered/Resolved]
  - Abdominal tenderness [Recovered/Resolved]
  - Dyschezia [Unknown]
  - Gastrointestinal sounds abnormal [Recovered/Resolved]
  - Abdominal pain [Recovered/Resolved]

NARRATIVE: CASE EVENT DATE: 20200806
